FAERS Safety Report 4335952-1 (Version None)
Quarter: 2004Q2

REPORT INFORMATION
  Report Type: 
  Country: None (occurrence: None)
  Receive Date: 20040406
  Receipt Date: 20040331
  Transmission Date: 20050107
  Serious: Yes (Other)
  Sender: FDA-Public Use
  Company Number: THQ2004A00326

PATIENT
  Age: 67 Year
  Sex: Female

DRUGS (1)
  1. LANSOPRAZOLE [Suspect]
     Indication: DYSPEPSIA
     Dosage: PER ORAL
     Route: 048
     Dates: start: 20021201, end: 20030701

REACTIONS (1)
  - SYSTEMIC LUPUS ERYTHEMATOSUS [None]
